FAERS Safety Report 18507707 (Version 1)
Quarter: 2020Q4

REPORT INFORMATION
  Report Type: Spontaneous
  Country: JP (occurrence: JP)
  Receive Date: 20201116
  Receipt Date: 20201116
  Transmission Date: 20210114
  Serious: Yes (Death, Other)
  Sender: FDA-Public Use
  Company Number: JP-BRACCO-2020JP04602

PATIENT
  Age: 62 Year
  Sex: Female

DRUGS (1)
  1. IOPAMIDOL [Suspect]
     Active Substance: IOPAMIDOL
     Indication: COMPUTERISED TOMOGRAM
     Dosage: 120 ML, SINGLE

REACTIONS (6)
  - Infusion site extravasation [Unknown]
  - Mydriasis [Unknown]
  - Contrast encephalopathy [Fatal]
  - Hemiparesis [Unknown]
  - Depressed level of consciousness [Unknown]
  - Somnolence [Unknown]
